FAERS Safety Report 7612012-5 (Version None)
Quarter: 2011Q3

REPORT INFORMATION
  Report Type: 
  Country: None (occurrence: None)
  Receive Date: 20110715
  Receipt Date: 20110708
  Transmission Date: 20111222
  Serious: Yes (Hospitalization, Other)
  Sender: FDA-Public Use
  Company Number: US-US-EMD SERONO, INC.-7052691

PATIENT
  Sex: Male
  Weight: 82 kg

DRUGS (3)
  1. REBIF [Suspect]
     Indication: PRIMARY PROGRESSIVE MULTIPLE SCLEROSIS
     Route: 058
     Dates: start: 20090107
  2. IBUPROFEN [Concomitant]
     Indication: PREMEDICATION
  3. PREDNISONE TAB [Concomitant]
     Indication: PRIMARY PROGRESSIVE MULTIPLE SCLEROSIS

REACTIONS (7)
  - MULTIPLE SCLEROSIS RELAPSE [None]
  - INJECTION SITE ERYTHEMA [None]
  - URINARY TRACT INFECTION [None]
  - NEPHROLITHIASIS [None]
  - MALAISE [None]
  - LIVER FUNCTION TEST ABNORMAL [None]
  - BLOOD IRON DECREASED [None]
